FAERS Safety Report 10701586 (Version 1)
Quarter: 2015Q1

REPORT INFORMATION
  Report Type: Spontaneous
  Country: FR (occurrence: FR)
  Receive Date: 20150109
  Receipt Date: 20150109
  Transmission Date: 20150721
  Serious: Yes (Hospitalization)
  Sender: FDA-Public Use
  Company Number: FR-PFIZER INC-2015006242

PATIENT
  Age: 39 Year
  Sex: Female
  Weight: 74 kg

DRUGS (13)
  1. NORSET [Suspect]
     Active Substance: MIRTAZAPINE
     Dosage: 15 MG, 3X/DAY
     Dates: start: 20141010, end: 20141102
  2. TARDYFERON [Concomitant]
     Active Substance: FERROUS SULFATE\FOLIC ACID
     Dosage: UNK (DURING THE THIRD TRIMESTER)
  3. EFFEXOR LP [Suspect]
     Active Substance: VENLAFAXINE HYDROCHLORIDE
     Dosage: 75 MG, UNK
  4. EFFEXOR LP [Suspect]
     Active Substance: VENLAFAXINE HYDROCHLORIDE
     Dosage: 75 MG, 3X/DAY
     Dates: start: 20141201, end: 20141213
  5. ATARAX [Suspect]
     Active Substance: HYDROXYZINE\HYDROXYZINE HYDROCHLORIDE
     Dosage: 50 MG, 2X/DAY
     Dates: start: 20141220, end: 20141220
  6. FOLIC ACID. [Concomitant]
     Active Substance: FOLIC ACID
  7. NORSET [Suspect]
     Active Substance: MIRTAZAPINE
     Dosage: 15 MG, 1X/DAY
     Dates: start: 20141103, end: 20141221
  8. CLAMOXYL [Concomitant]
     Active Substance: AMOXICILLIN\CLAVULANIC ACID
  9. EFFEXOR LP [Suspect]
     Active Substance: VENLAFAXINE HYDROCHLORIDE
     Dosage: 375 MG, DAILY (75 MG 5 TIMES PER DAY)
     Dates: start: 20141010, end: 20141102
  10. NORSET [Suspect]
     Active Substance: MIRTAZAPINE
     Dosage: UNK (BEGINNING OF PREGNANCY)
  11. EFFEXOR LP [Suspect]
     Active Substance: VENLAFAXINE HYDROCHLORIDE
     Dosage: 75 MG, 4X/DAY
     Dates: start: 20141103, end: 20141130
  12. EFFEXOR LP [Suspect]
     Active Substance: VENLAFAXINE HYDROCHLORIDE
     Dosage: 75 MG, 2X/DAY
     Dates: start: 20141214, end: 20141221
  13. UVEDOSE [Concomitant]
     Active Substance: CHOLECALCIFEROL
     Dosage: UNK (DURING THE THIRD TRIMESTER)

REACTIONS (2)
  - Agitation [Unknown]
  - Premature rupture of membranes [Unknown]
